FAERS Safety Report 9258658 (Version 1)
Quarter: 2013Q2

REPORT INFORMATION
  Report Type: Spontaneous
  Country: FR (occurrence: FR)
  Receive Date: 20130426
  Receipt Date: 20130426
  Transmission Date: 20140414
  Serious: Yes (Hospitalization)
  Sender: FDA-Public Use
  Company Number: FR-009507513-0902FRA00054

PATIENT
  Age: 65 Year
  Sex: Male

DRUGS (5)
  1. EMEND [Suspect]
     Indication: PROPHYLAXIS OF NAUSEA AND VOMITING
     Route: 048
     Dates: start: 200811, end: 200811
  2. CARBOPLATIN [Suspect]
     Indication: LUNG NEOPLASM MALIGNANT
     Route: 041
     Dates: start: 20081124, end: 20081126
  3. ETOPOSIDE [Suspect]
     Indication: LUNG NEOPLASM MALIGNANT
     Route: 041
     Dates: start: 20081124, end: 20081126
  4. ONDANSETRON HYDROCHLORIDE [Suspect]
     Indication: PROPHYLAXIS OF NAUSEA AND VOMITING
     Dates: start: 200811, end: 200811
  5. LENOGRASTIM [Suspect]
     Indication: NEUTROPENIA
     Route: 042
     Dates: start: 200811, end: 200811

REACTIONS (3)
  - Transaminases increased [Recovered/Resolved]
  - Cholestasis [Recovered/Resolved]
  - Lipase increased [Recovered/Resolved]
